FAERS Safety Report 7563099-X (Version None)
Quarter: 2011Q2

REPORT INFORMATION
  Report Type: 
  Country: None (occurrence: None)
  Receive Date: 20110621
  Receipt Date: 20110621
  Transmission Date: 20111010
  Serious: Yes (Hospitalization)
  Sender: FDA-Public Use
  Company Number: None

PATIENT
  Sex: Female
  Weight: 92.5 kg

DRUGS (4)
  1. ACETAMINOPHEN [Concomitant]
  2. REMICADE [Suspect]
     Indication: CROHN'S DISEASE
     Dosage: 500 MG IN 250ML 0.9% NACL ONCE INTRAVENOUS
     Route: 042
     Dates: start: 20110114
  3. DIPHENHYDRAMINE HCL [Concomitant]
  4. MPRED [Concomitant]

REACTIONS (4)
  - PANIC REACTION [None]
  - DYSPNOEA [None]
  - ERYTHEMA [None]
  - INFUSION RELATED REACTION [None]
